FAERS Safety Report 14412768 (Version 2)
Quarter: 2018Q1

REPORT INFORMATION
  Report Type: Spontaneous
  Country: US (occurrence: US)
  Receive Date: 20180119
  Receipt Date: 20180124
  Transmission Date: 20180509
  Serious: Yes (Hospitalization, Other)
  Sender: FDA-Public Use
  Company Number: US-PFIZER INC-2018025700

PATIENT
  Sex: Female
  Weight: 72 kg

DRUGS (7)
  1. CRESTOR [Suspect]
     Active Substance: ROSUVASTATIN CALCIUM
     Indication: BLOOD CHOLESTEROL INCREASED
     Dosage: 5 MG, 2X/WEEK
     Route: 048
  2. BYDUREON [Suspect]
     Active Substance: EXENATIDE
     Indication: TYPE 2 DIABETES MELLITUS
     Dosage: 2 MG, WEEKLY
     Route: 058
     Dates: start: 201711
  3. TOPROL XL [Suspect]
     Active Substance: METOPROLOL SUCCINATE
     Dosage: 50 MG, 1X/DAY
     Route: 048
  4. LIPITOR [Suspect]
     Active Substance: ATORVASTATIN CALCIUM
     Dosage: UNK
  5. TOPROL XL [Suspect]
     Active Substance: METOPROLOL SUCCINATE
     Dosage: 25 MG, 1X/DAY
     Route: 048
  6. ATENOLOL. [Suspect]
     Active Substance: ATENOLOL
     Indication: BLOOD PRESSURE ABNORMAL
     Dosage: 25 MG, 1X/DAY
     Route: 048
     Dates: start: 2016
  7. ASPIRIN. [Concomitant]
     Active Substance: ASPIRIN
     Dosage: 81 MG, 1X/DAY
     Route: 048

REACTIONS (10)
  - Loss of consciousness [Recovered/Resolved]
  - General physical health deterioration [Recovered/Resolved]
  - Type 2 diabetes mellitus [Unknown]
  - Blood glucose increased [Unknown]
  - Pain in extremity [Recovered/Resolved]
  - Blood pressure abnormal [Unknown]
  - Somnolence [Recovered/Resolved]
  - Cardiac disorder [Unknown]
  - Blood cholesterol increased [Unknown]
  - Cardiac arrest [Recovered/Resolved]
